FAERS Safety Report 6572615-6 (Version None)
Quarter: 2010Q1

REPORT INFORMATION
  Report Type: 
  Country: None (occurrence: None)
  Receive Date: 20100205
  Receipt Date: 20100125
  Transmission Date: 20100710
  Serious: Yes (Other)
  Sender: FDA-Public Use
  Company Number: US-JNJCH-2010002984

PATIENT
  Age: 44 Year
  Sex: Female
  Weight: 77.1 kg

DRUGS (2)
  1. ROLAIDS MULTI-SYMPTOM [Suspect]
     Indication: DYSPEPSIA
     Dosage: TEXT:2 TABLETS DAILY
     Route: 048
  2. TOPOROL [Concomitant]
     Indication: CARDIAC DISORDER
     Dosage: TEXT:50 MG UNSPECIFIED
     Route: 065

REACTIONS (4)
  - DYSPEPSIA [None]
  - MIGRAINE [None]
  - NAUSEA [None]
  - VOMITING [None]
